FAERS Safety Report 7205610-4 (Version None)
Quarter: 2010Q4

REPORT INFORMATION
  Report Type: 
  Country: None (occurrence: None)
  Receive Date: 20101231
  Receipt Date: 20101225
  Transmission Date: 20110411
  Serious: Yes (Other)
  Sender: FDA-Public Use
  Company Number: JP-AMGEN-JPNCT2010011106

PATIENT

DRUGS (12)
  1. PANITUMUMAB [Suspect]
     Indication: COLORECTAL CANCER
     Dosage: 6 MG/KG, Q2WK
     Route: 041
     Dates: start: 20101007, end: 20101125
  2. OXALIPLATIN [Suspect]
     Indication: COLORECTAL CANCER
     Dosage: 100 MG, Q2WK
     Route: 041
     Dates: start: 20100922, end: 20101125
  3. FLUOROURACIL [Suspect]
     Indication: COLORECTAL CANCER
     Dosage: 500 MG, Q2WK
     Route: 041
     Dates: start: 20100922, end: 20101125
  4. LEUCOVORIN [Suspect]
     Indication: COLORECTAL CANCER
     Dosage: 250 MG, Q2WK
     Route: 041
     Dates: start: 20100922, end: 20101125
  5. CALCIUM LEVOFOLINATE [Concomitant]
     Indication: COLORECTAL CANCER
     Dosage: UNK UNK, Q2WK
     Route: 041
     Dates: start: 20101007
  6. CORTICOSTEROIDS [Concomitant]
     Indication: PROPHYLAXIS
     Route: 065
  7. HIRUDOID SOFT [Concomitant]
     Route: 062
  8. OLMETEC [Concomitant]
     Route: 048
  9. HARNAL D [Concomitant]
     Route: 048
  10. BIOFERMIN [Concomitant]
     Route: 048
  11. MUCOSTA [Concomitant]
     Route: 048
  12. MAGMITT [Concomitant]
     Route: 048

REACTIONS (8)
  - ACNE [None]
  - BLOOD AMYLASE INCREASED [None]
  - DRY SKIN [None]
  - HYPERAMYLASAEMIA [None]
  - INTERSTITIAL LUNG DISEASE [None]
  - PARONYCHIA [None]
  - REFLUX OESOPHAGITIS [None]
  - STOMATITIS [None]
